FAERS Safety Report 20707721 (Version 2)
Quarter: 2022Q2

REPORT INFORMATION
  Report Type: Spontaneous
  Country: TR (occurrence: TR)
  Receive Date: 20220413
  Receipt Date: 20220421
  Transmission Date: 20220721
  Serious: Yes (Death, Life-Threatening, Hospitalization, Other)
  Sender: FDA-Public Use
  Company Number: None

PATIENT
  Age: 64 Year
  Sex: Male

DRUGS (58)
  1. VANCOMYCIN [Suspect]
     Active Substance: VANCOMYCIN
     Indication: Antibiotic therapy
     Dosage: UNK
     Route: 065
  2. VANCOMYCIN [Suspect]
     Active Substance: VANCOMYCIN
     Indication: Klebsiella bacteraemia
  3. VANCOMYCIN [Suspect]
     Active Substance: VANCOMYCIN
     Indication: Stenotrophomonas bacteraemia
  4. VANCOMYCIN [Suspect]
     Active Substance: VANCOMYCIN
     Indication: Pseudomonal bacteraemia
  5. VANCOMYCIN [Suspect]
     Active Substance: VANCOMYCIN
     Indication: Acinetobacter bacteraemia
  6. CLARITHROMYCIN [Suspect]
     Active Substance: CLARITHROMYCIN
     Indication: Antibiotic therapy
     Dosage: UNK
     Route: 065
  7. CLARITHROMYCIN [Suspect]
     Active Substance: CLARITHROMYCIN
     Indication: Stenotrophomonas bacteraemia
  8. CLARITHROMYCIN [Suspect]
     Active Substance: CLARITHROMYCIN
     Indication: Pseudomonal bacteraemia
  9. CLARITHROMYCIN [Suspect]
     Active Substance: CLARITHROMYCIN
     Indication: Acinetobacter bacteraemia
  10. CLARITHROMYCIN [Suspect]
     Active Substance: CLARITHROMYCIN
     Indication: Klebsiella bacteraemia
  11. MEROPENEM [Suspect]
     Active Substance: MEROPENEM
     Indication: Antibiotic therapy
     Dosage: UNK
     Route: 065
  12. MEROPENEM [Suspect]
     Active Substance: MEROPENEM
     Indication: Stenotrophomonas bacteraemia
  13. MEROPENEM [Suspect]
     Active Substance: MEROPENEM
     Indication: Pseudomonal bacteraemia
  14. MEROPENEM [Suspect]
     Active Substance: MEROPENEM
     Indication: Acinetobacter bacteraemia
  15. MEROPENEM [Suspect]
     Active Substance: MEROPENEM
     Indication: Klebsiella bacteraemia
  16. PIPERACILLIN AND TAZOBACTAM [Suspect]
     Active Substance: PIPERACILLIN SODIUM\TAZOBACTAM SODIUM
     Indication: Antibiotic therapy
     Dosage: UNK
     Route: 065
  17. PIPERACILLIN AND TAZOBACTAM [Suspect]
     Active Substance: PIPERACILLIN SODIUM\TAZOBACTAM SODIUM
     Indication: Stenotrophomonas bacteraemia
  18. PIPERACILLIN AND TAZOBACTAM [Suspect]
     Active Substance: PIPERACILLIN SODIUM\TAZOBACTAM SODIUM
     Indication: Pseudomonal bacteraemia
  19. PIPERACILLIN AND TAZOBACTAM [Suspect]
     Active Substance: PIPERACILLIN SODIUM\TAZOBACTAM SODIUM
     Indication: Acinetobacter bacteraemia
  20. PIPERACILLIN AND TAZOBACTAM [Suspect]
     Active Substance: PIPERACILLIN SODIUM\TAZOBACTAM SODIUM
     Indication: Klebsiella bacteraemia
  21. CEFOPERAZONE SODIUM\SULBACTAM [Suspect]
     Active Substance: CEFOPERAZONE SODIUM\SULBACTAM
     Indication: Antibiotic therapy
     Dosage: UNK
     Route: 065
  22. CEFOPERAZONE SODIUM\SULBACTAM [Suspect]
     Active Substance: CEFOPERAZONE SODIUM\SULBACTAM
     Indication: Stenotrophomonas bacteraemia
  23. CEFOPERAZONE SODIUM\SULBACTAM [Suspect]
     Active Substance: CEFOPERAZONE SODIUM\SULBACTAM
     Indication: Pseudomonal bacteraemia
  24. CEFOPERAZONE SODIUM\SULBACTAM [Suspect]
     Active Substance: CEFOPERAZONE SODIUM\SULBACTAM
     Indication: Acinetobacter bacteraemia
  25. CEFOPERAZONE SODIUM\SULBACTAM [Suspect]
     Active Substance: CEFOPERAZONE SODIUM\SULBACTAM
     Indication: Klebsiella bacteraemia
  26. COLISTIN [Suspect]
     Active Substance: COLISTIN
     Indication: Antibiotic therapy
     Dosage: UNK
     Route: 065
  27. COLISTIN [Suspect]
     Active Substance: COLISTIN
     Indication: Stenotrophomonas bacteraemia
  28. COLISTIN [Suspect]
     Active Substance: COLISTIN
     Indication: Pseudomonal bacteraemia
  29. COLISTIN [Suspect]
     Active Substance: COLISTIN
     Indication: Acinetobacter bacteraemia
  30. COLISTIN [Suspect]
     Active Substance: COLISTIN
     Indication: Klebsiella bacteraemia
  31. FOSFOMYCIN [Suspect]
     Active Substance: FOSFOMYCIN
     Indication: Antibiotic therapy
     Dosage: UNK
     Route: 065
  32. FOSFOMYCIN [Suspect]
     Active Substance: FOSFOMYCIN
     Indication: Stenotrophomonas bacteraemia
  33. FOSFOMYCIN [Suspect]
     Active Substance: FOSFOMYCIN
     Indication: Pseudomonal bacteraemia
  34. FOSFOMYCIN [Suspect]
     Active Substance: FOSFOMYCIN
     Indication: Acinetobacter bacteraemia
  35. FOSFOMYCIN [Suspect]
     Active Substance: FOSFOMYCIN
     Indication: Klebsiella bacteraemia
  36. LINEZOLID [Suspect]
     Active Substance: LINEZOLID
     Indication: Antibiotic therapy
     Dosage: UNK
     Route: 065
  37. LINEZOLID [Suspect]
     Active Substance: LINEZOLID
     Indication: Stenotrophomonas bacteraemia
  38. LINEZOLID [Suspect]
     Active Substance: LINEZOLID
     Indication: Pseudomonal bacteraemia
  39. LINEZOLID [Suspect]
     Active Substance: LINEZOLID
     Indication: Acinetobacter bacteraemia
  40. LINEZOLID [Suspect]
     Active Substance: LINEZOLID
     Indication: Klebsiella bacteraemia
  41. AVIBACTAM SODIUM\CEFTAZIDIME [Suspect]
     Active Substance: AVIBACTAM SODIUM\CEFTAZIDIME
     Indication: Antibiotic therapy
     Dosage: UNK
     Route: 065
  42. AVIBACTAM SODIUM\CEFTAZIDIME [Suspect]
     Active Substance: AVIBACTAM SODIUM\CEFTAZIDIME
     Indication: Stenotrophomonas bacteraemia
  43. AVIBACTAM SODIUM\CEFTAZIDIME [Suspect]
     Active Substance: AVIBACTAM SODIUM\CEFTAZIDIME
     Indication: Pseudomonal bacteraemia
  44. AVIBACTAM SODIUM\CEFTAZIDIME [Suspect]
     Active Substance: AVIBACTAM SODIUM\CEFTAZIDIME
     Indication: Acinetobacter bacteraemia
  45. AVIBACTAM SODIUM\CEFTAZIDIME [Suspect]
     Active Substance: AVIBACTAM SODIUM\CEFTAZIDIME
     Indication: Klebsiella bacteraemia
  46. IMIPENEM [Suspect]
     Active Substance: IMIPENEM
     Indication: Antibiotic therapy
     Dosage: UNK
     Route: 065
  47. IMIPENEM [Suspect]
     Active Substance: IMIPENEM
     Indication: Stenotrophomonas bacteraemia
  48. IMIPENEM [Suspect]
     Active Substance: IMIPENEM
     Indication: Pseudomonal bacteraemia
  49. IMIPENEM [Suspect]
     Active Substance: IMIPENEM
     Indication: Acinetobacter bacteraemia
  50. IMIPENEM [Suspect]
     Active Substance: IMIPENEM
     Indication: Klebsiella bacteraemia
  51. COTRIMOXAZOLE [Suspect]
     Active Substance: SULFAMETHOXAZOLE\TRIMETHOPRIM
     Indication: Antibiotic therapy
     Dosage: UNK
     Route: 065
  52. COTRIMOXAZOLE [Suspect]
     Active Substance: SULFAMETHOXAZOLE\TRIMETHOPRIM
     Indication: Stenotrophomonas bacteraemia
  53. COTRIMOXAZOLE [Suspect]
     Active Substance: SULFAMETHOXAZOLE\TRIMETHOPRIM
     Indication: Pseudomonal bacteraemia
  54. COTRIMOXAZOLE [Suspect]
     Active Substance: SULFAMETHOXAZOLE\TRIMETHOPRIM
     Indication: Acinetobacter bacteraemia
  55. COTRIMOXAZOLE [Suspect]
     Active Substance: SULFAMETHOXAZOLE\TRIMETHOPRIM
     Indication: Klebsiella bacteraemia
  56. DEXAMETHASONE [Concomitant]
     Active Substance: DEXAMETHASONE
     Indication: COVID-19 pneumonia
     Dosage: 8 MILLIGRAM PER DAY
     Route: 065
  57. TOCILIZUMAB [Concomitant]
     Active Substance: TOCILIZUMAB
     Indication: COVID-19 pneumonia
     Dosage: 400 MILLIGRAM PER DAY , 2 DOSES
     Route: 065
  58. FAVIPIRAVIR [Concomitant]
     Active Substance: FAVIPIRAVIR
     Indication: COVID-19 pneumonia
     Dosage: UNK
     Route: 065

REACTIONS (7)
  - Hypotension [Fatal]
  - Multiple-drug resistance [Fatal]
  - Bacteraemia [Fatal]
  - Device related bacteraemia [Fatal]
  - Cardiac arrest [Fatal]
  - Drug resistance [Unknown]
  - Off label use [Unknown]
